FAERS Safety Report 23512927 (Version 1)
Quarter: 2024Q1

REPORT INFORMATION
  Report Type: Spontaneous
  Country: US (occurrence: None)
  Receive Date: 20240209
  Receipt Date: 20240209
  Transmission Date: 20240410
  Serious: Yes (Hospitalization)
  Sender: FDA-Public Use
  Company Number: None

PATIENT
  Age: 39 Year
  Sex: Male

DRUGS (2)
  1. REMICADE [Suspect]
     Active Substance: INFLIXIMAB
     Indication: Pulmonary sarcoidosis
     Dosage: FREQUENCY : AS DIRECTED;?
     Route: 042
     Dates: start: 20230505
  2. REMICADE [Suspect]
     Active Substance: INFLIXIMAB
     Dosage: FREQUENCY : AS DIRECTED;?
     Route: 042

REACTIONS (1)
  - Implantable defibrillator insertion [None]

NARRATIVE: CASE EVENT DATE: 20230601
